FAERS Safety Report 6917322-2 (Version None)
Quarter: 2010Q3

REPORT INFORMATION
  Report Type: 
  Country: None (occurrence: None)
  Receive Date: 20100805
  Receipt Date: 20100723
  Transmission Date: 20110219
  Serious: Yes (Death, Life-Threatening, Hospitalization, Other)
  Sender: FDA-Public Use
  Company Number: VISP-PR-1005S-0223

PATIENT
  Age: 79 Year
  Sex: Male

DRUGS (4)
  1. VISIPAQUE [Suspect]
     Indication: COUGH
     Dosage: 100 ML, SINGLE DOSE, I.V.
     Route: 042
     Dates: start: 20100419, end: 20100419
  2. GLYBURIDE [Concomitant]
  3. METFORMIN [Concomitant]
  4. ZOCOR [Concomitant]

REACTIONS (12)
  - BRADYCARDIA [None]
  - BRAIN STEM INFARCTION [None]
  - CEREBRAL INFARCTION [None]
  - COMA [None]
  - CONVULSION [None]
  - HYPOTENSION [None]
  - PNEUMONIA [None]
  - PULMONARY MASS [None]
  - RENAL FAILURE ACUTE [None]
  - RESPIRATORY FAILURE [None]
  - UNRESPONSIVE TO STIMULI [None]
  - VOMITING [None]
